FAERS Safety Report 16445579 (Version 2)
Quarter: 2019Q4

REPORT INFORMATION
  Report Type: Spontaneous
  Country: US (occurrence: US)
  Receive Date: 20190618
  Receipt Date: 20191025
  Transmission Date: 20200122
  Serious: No
  Sender: FDA-Public Use
  Company Number: US-PFIZER INC-2019254129

PATIENT
  Age: 56 Year
  Sex: Male
  Weight: 88 kg

DRUGS (14)
  1. GABAPENTIN. [Suspect]
     Active Substance: GABAPENTIN
     Indication: NEUROPATHY PERIPHERAL
     Dosage: 800 MG, 4X/DAY
     Route: 048
  2. OMEPRAZOLE. [Concomitant]
     Active Substance: OMEPRAZOLE
     Dosage: 40 MG, UNK (40 MG X 1)
  3. LISINOPRIL HCTZ [Concomitant]
     Active Substance: HYDROCHLOROTHIAZIDE\LISINOPRIL
     Dosage: UNK
  4. AMBIEN [Concomitant]
     Active Substance: ZOLPIDEM TARTRATE
     Indication: SLEEP DISORDER
     Dosage: 10 MG, 1X/DAY [AT NIGHT]
     Dates: start: 2013
  5. GABAPENTIN. [Suspect]
     Active Substance: GABAPENTIN
     Dosage: 600 MG, UNK (600MG X 5)
     Dates: start: 201306
  6. PAXIL [Concomitant]
     Active Substance: PAROXETINE HYDROCHLORIDE
     Dosage: 25 MG, UNK(25MGX2)
  7. GABAPENTIN. [Suspect]
     Active Substance: GABAPENTIN
     Dosage: UNK
     Dates: start: 201305
  8. OXYCODONE [Concomitant]
     Active Substance: OXYCODONE
     Dosage: 7.5 MG, [3-4 TIMES DAILY]
     Dates: start: 2014
  9. VALIUM [Concomitant]
     Active Substance: DIAZEPAM
     Dosage: 5 MG, DAILY
     Dates: start: 2014
  10. LYRICA [Concomitant]
     Active Substance: PREGABALIN
     Dosage: 100 MG, UNK (100 MG X 3)
  11. OXYCODONE [Concomitant]
     Active Substance: OXYCODONE
     Indication: PAIN
     Dosage: 10 MG, UNK (10 MG X 4)
     Dates: start: 201306
  12. REMERON [Concomitant]
     Active Substance: MIRTAZAPINE
     Dosage: 45 MG, UNK(45MG.HR)
  13. VALIUM [Concomitant]
     Active Substance: DIAZEPAM
     Indication: ANXIETY
     Dosage: 10 MG, UNK
     Dates: start: 2014
  14. VALIUM [Concomitant]
     Active Substance: DIAZEPAM
     Dosage: 10 MG, UNK (10 MG-HR)
     Dates: start: 201601

REACTIONS (7)
  - Product use issue [Unknown]
  - Foreign body in respiratory tract [Not Recovered/Not Resolved]
  - Off label use [Unknown]
  - Pharyngeal mass [Not Recovered/Not Resolved]
  - Condition aggravated [Unknown]
  - Drug ineffective for unapproved indication [Unknown]
  - Product size issue [Not Recovered/Not Resolved]

NARRATIVE: CASE EVENT DATE: 2009
